FAERS Safety Report 10017636 (Version 1)
Quarter: 2014Q1

REPORT INFORMATION
  Report Type: Spontaneous
  Country: US (occurrence: US)
  Receive Date: 20140318
  Receipt Date: 20140318
  Transmission Date: 20141002
  Serious: No
  Sender: FDA-Public Use
  Company Number: US-BRISTOL-MYERS SQUIBB COMPANY-17413071

PATIENT
  Age: 69 Year
  Sex: Female
  Weight: 101.58 kg

DRUGS (7)
  1. ERBITUX [Suspect]
     Indication: LUNG NEOPLASM
     Dates: start: 20130213
  2. TAXOTERE [Concomitant]
  3. LEVOTHYROXINE [Concomitant]
  4. VERAPAMIL SR [Concomitant]
  5. METFORMIN HCL [Concomitant]
  6. FERROUS SULFATE [Concomitant]
  7. OMEPRAZOLE [Concomitant]

REACTIONS (3)
  - White blood cell count decreased [Unknown]
  - Oral fungal infection [Unknown]
  - Hypoacusis [Unknown]
